FAERS Safety Report 8771302 (Version 1)
Quarter: 2012Q4

REPORT INFORMATION
  Report Type: 
  Country: JP (occurrence: JP)
  Receive Date: 20120907
  Receipt Date: 20120907
  Transmission Date: 20130627
  Serious: Yes (Death, Other)
  Sender: FDA-Public Use
  Company Number: JP-CELGENEUS-087-21880-12081452

PATIENT
  Age: 71 Year
  Sex: Female

DRUGS (6)
  1. REVLIMID [Suspect]
     Indication: MULTIPLE MYELOMA
     Dosage: 10 Milligram
     Route: 048
     Dates: start: 20120608, end: 20120622
  2. REVLIMID [Suspect]
     Dosage: 10 Milligram
     Route: 048
     Dates: start: 20120706, end: 20120801
  3. LENADEX [Suspect]
     Indication: MULTIPLE MYELOMA
     Dosage: 1.7143 Milligram
     Route: 048
     Dates: start: 20120608, end: 20120622
  4. UNSPECIFIED INGREDIENT [Suspect]
     Dosage: 1.7143 Milligram
     Route: 048
     Dates: start: 20120706, end: 20120801
  5. OXYCONTIN [Concomitant]
     Indication: DRUG USE FOR UNKNOWN INDICATION
     Route: 065
     Dates: start: 20120706
  6. ENDOXAN [Concomitant]
     Indication: MULTIPLE MYELOMA
     Dosage: 100 Milligram
     Route: 065
     Dates: start: 20120806

REACTIONS (4)
  - Pleural effusion [Fatal]
  - Dyspnoea [Fatal]
  - Pyrexia [Fatal]
  - Bone marrow failure [Unknown]
